FAERS Safety Report 6580548-4 (Version None)
Quarter: 2010Q1

REPORT INFORMATION
  Report Type: 
  Country: None (occurrence: None)
  Receive Date: 20100212
  Receipt Date: 20100203
  Transmission Date: 20100710
  Serious: Yes (Other)
  Sender: FDA-Public Use
  Company Number: US-PFIZER INC-2010015073

PATIENT
  Sex: Female
  Weight: 61.224 kg

DRUGS (4)
  1. LIPITOR [Suspect]
     Indication: BLOOD CHOLESTEROL INCREASED
     Dosage: 10 MG, 1X/DAY
     Route: 048
     Dates: start: 19910101
  2. COREG [Concomitant]
     Route: 048
  3. PLAVIX [Concomitant]
     Route: 048
  4. BENICAR [Concomitant]
     Indication: HYPERTENSION
     Route: 048

REACTIONS (4)
  - DRUG INEFFECTIVE [None]
  - FIBROMYALGIA [None]
  - MUSCULAR WEAKNESS [None]
  - MYALGIA [None]
